FAERS Safety Report 5851057-2 (Version None)
Quarter: 2008Q3

REPORT INFORMATION
  Report Type: 
  Country: None (occurrence: None)
  Receive Date: 20080818
  Receipt Date: 20080801
  Transmission Date: 20090109
  Serious: Yes (Disabling)
  Sender: FDA-Public Use
  Company Number: 8035928

PATIENT
  Age: 52 Year
  Weight: 90 kg

DRUGS (3)
  1. KEPPRA [Suspect]
     Indication: COMPLEX PARTIAL SEIZURES
     Dosage: 250 MG; PO
     Route: 048
     Dates: start: 20080601, end: 20080618
  2. CARBAMAZEPINE [Concomitant]
  3. DICLOFENAC [Concomitant]

REACTIONS (1)
  - ARTHRALGIA [None]
